FAERS Safety Report 9896855 (Version 2)
Quarter: 2014Q3

REPORT INFORMATION
  Report Type: Spontaneous
  Country: IE (occurrence: IE)
  Receive Date: 20140214
  Receipt Date: 20140821
  Transmission Date: 20150326
  Serious: Yes (Death)
  Sender: FDA-Public Use
  Company Number: IE-AMGEN-IRLSP2014009611

PATIENT
  Age: 81 Year
  Sex: Male

DRUGS (9)
  1. ALLOPURINOL. [Concomitant]
     Active Substance: ALLOPURINOL
  2. ARANESP [Suspect]
     Active Substance: DARBEPOETIN ALFA
     Indication: NEPHROPATHY
     Dosage: 40 MUG, EVERY OTHER WEEK
     Route: 058
     Dates: start: 20120130
  3. ONE ALPHA [Concomitant]
     Active Substance: ALFACALCIDOL
  4. LOSEC                              /00661201/ [Concomitant]
  5. PLAVIX [Concomitant]
     Active Substance: CLOPIDOGREL BISULFATE
  6. LIPOSTAT [Concomitant]
     Active Substance: PRAVASTATIN SODIUM
  7. COVERSYL                           /00790702/ [Concomitant]
     Active Substance: PERINDOPRIL
  8. CALCICHEW [Concomitant]
     Active Substance: CALCIUM CARBONATE
  9. AMLODIPINE [Concomitant]
     Active Substance: AMLODIPINE BESYLATE

REACTIONS (1)
  - Death [Fatal]

NARRATIVE: CASE EVENT DATE: 20140206
